FAERS Safety Report 9509850 (Version 1)
Quarter: 2013Q3

REPORT INFORMATION
  Report Type: Spontaneous
  Country: US (occurrence: US)
  Receive Date: 20130909
  Receipt Date: 20130909
  Transmission Date: 20140515
  Serious: No
  Sender: FDA-Public Use
  Company Number: US-BRISTOL-MYERS SQUIBB COMPANY-17096793

PATIENT
  Age: 31 Year
  Sex: Male

DRUGS (4)
  1. ABILIFY TABS 15 MG [Suspect]
  2. HUMALOG [Concomitant]
  3. LOVASTATIN [Concomitant]
  4. KLONOPIN [Concomitant]

REACTIONS (2)
  - Aggression [Unknown]
  - Drug dose omission [Unknown]
